FAERS Safety Report 8380579-8 (Version None)
Quarter: 2012Q2

REPORT INFORMATION
  Report Type: 
  Country: None (occurrence: None)
  Receive Date: 20120523
  Receipt Date: 20120521
  Transmission Date: 20120825
  Serious: Yes (Hospitalization, Other)
  Sender: FDA-Public Use
  Company Number: US-BAYER-201035808NA

PATIENT
  Age: 26 Year
  Sex: Female
  Weight: 117.91 kg

DRUGS (3)
  1. YASMIN [Suspect]
     Dosage: UNK UNK, UNK
     Route: 048
     Dates: start: 20040801, end: 20040924
  2. MEDROXYPROGESTERONE [Concomitant]
  3. PROVERA [Concomitant]
     Dosage: UNK
     Dates: start: 20040816

REACTIONS (3)
  - ABORTION SPONTANEOUS [None]
  - HABITUAL ABORTION [None]
  - PULMONARY EMBOLISM [None]
